FAERS Safety Report 12390948 (Version 2)
Quarter: 2016Q3

REPORT INFORMATION
  Report Type: Report from Study
  Country: CH (occurrence: CH)
  Receive Date: 20160520
  Receipt Date: 20160809
  Transmission Date: 20161109
  Serious: Yes (Hospitalization)
  Sender: FDA-Public Use
  Company Number: CH-ABBVIE-16P-151-1632158-00

PATIENT
  Age: 76 Year
  Sex: Female

DRUGS (1)
  1. DUODOPA [Suspect]
     Active Substance: CARBIDOPA\LEVODOPA
     Indication: PARKINSON^S DISEASE
     Dosage: MORNING DOSE: 6.1ML;CONTINUOUS DOSE: 3.6ML/H; EXTRA DOSE: 1.5ML
     Route: 050
     Dates: start: 20110414

REACTIONS (3)
  - Clostridium bacteraemia [Unknown]
  - Akinesia [Unknown]
  - Dyspnoea [Unknown]

NARRATIVE: CASE EVENT DATE: 201605
